FAERS Safety Report 15114142 (Version 1)
Quarter: 2018Q3

REPORT INFORMATION
  Report Type: Spontaneous
  Country: AU (occurrence: AU)
  Receive Date: 20180706
  Receipt Date: 20180706
  Transmission Date: 20181010
  Serious: Yes (Other)
  Sender: FDA-Public Use
  Company Number: AU-CONCORDIA PHARMACEUTICALS INC.-E2B_00013230

PATIENT
  Age: 36 Year
  Sex: Female
  Weight: 125 kg

DRUGS (5)
  1. PREDNISOLONE. [Suspect]
     Active Substance: PREDNISOLONE
     Dosage: HIGH DOSES
     Dates: start: 201511
  2. MYCOPHENOLATE MOFETIL. [Concomitant]
     Active Substance: MYCOPHENOLATE MOFETIL
     Indication: PYODERMA GANGRENOSUM
  3. METHOTREXATE. [Concomitant]
     Active Substance: METHOTREXATE
     Indication: PYODERMA GANGRENOSUM
  4. PREDNISOLONE. [Suspect]
     Active Substance: PREDNISOLONE
     Indication: PYODERMA GANGRENOSUM
  5. IMMUNOGLOBULIN IV [Concomitant]
     Active Substance: HUMAN IMMUNOGLOBULIN G
     Indication: PYODERMA GANGRENOSUM

REACTIONS (3)
  - Osteoporosis [Unknown]
  - Diabetes mellitus [Recovered/Resolved]
  - Obesity [Unknown]
